FAERS Safety Report 23063994 (Version 2)
Quarter: 2023Q4

REPORT INFORMATION
  Report Type: Spontaneous
  Country: US (occurrence: US)
  Receive Date: 20231013
  Receipt Date: 20231016
  Transmission Date: 20240109
  Serious: No
  Sender: FDA-Public Use
  Company Number: US-BAUSCH-BL-2023-015161

PATIENT
  Sex: Female

DRUGS (1)
  1. TRULANCE [Suspect]
     Active Substance: PLECANATIDE
     Indication: Product used for unknown indication
     Route: 065

REACTIONS (6)
  - Faeces discoloured [Unknown]
  - Abdominal pain [Unknown]
  - Flatulence [Unknown]
  - Abdominal distension [Unknown]
  - Diarrhoea [Unknown]
  - Product solubility abnormal [Unknown]
